FAERS Safety Report 19226733 (Version 2)
Quarter: 2021Q2

REPORT INFORMATION
  Report Type: Spontaneous
  Country: US (occurrence: US)
  Receive Date: 20210506
  Receipt Date: 20210625
  Transmission Date: 20210717
  Serious: No
  Sender: FDA-Public Use
  Company Number: US-ASTRAZENECA-2021A296694

PATIENT
  Sex: Male

DRUGS (1)
  1. SYMBICORT [Suspect]
     Active Substance: BUDESONIDE\FORMOTEROL FUMARATE DIHYDRATE
     Dosage: 160/4.5MCG 2 PUFFS , TWO TIMES A DAY
     Route: 055
     Dates: start: 20190314, end: 20210407

REACTIONS (5)
  - Exercise tolerance decreased [Unknown]
  - Drug ineffective [Unknown]
  - Fatigue [Unknown]
  - Dyspnoea [Unknown]
  - Product taste abnormal [Unknown]
